FAERS Safety Report 6681964-2 (Version None)
Quarter: 2010Q1

REPORT INFORMATION
  Report Type: 
  Country: None (occurrence: None)
  Receive Date: 20100329
  Receipt Date: 20100315
  Transmission Date: 20100710
  Serious: Yes (Death, Hospitalization)
  Sender: FDA-Public Use
  Company Number: 2010022260

PATIENT
  Sex: Male

DRUGS (5)
  1. PRIVIGEN [Suspect]
     Indication: RENAL AND PANCREAS TRANSPLANT REJECTION
     Dosage: INTRAVENOUS (NOT OTHERWISE SPECIFIED)), INTRAVENOUS  (NOT OTHERWISE SPECIFIED)), INTRAENOUS (NOT OTH
     Route: 042
     Dates: start: 20091109, end: 20091109
  2. PRIVIGEN [Suspect]
     Indication: RENAL AND PANCREAS TRANSPLANT REJECTION
     Dosage: INTRAVENOUS (NOT OTHERWISE SPECIFIED)), INTRAVENOUS  (NOT OTHERWISE SPECIFIED)), INTRAENOUS (NOT OTH
     Route: 042
     Dates: start: 20091118, end: 20091118
  3. PRIVIGEN [Suspect]
     Indication: RENAL AND PANCREAS TRANSPLANT REJECTION
     Dosage: INTRAVENOUS (NOT OTHERWISE SPECIFIED)), INTRAVENOUS  (NOT OTHERWISE SPECIFIED)), INTRAENOUS (NOT OTH
     Route: 042
     Dates: start: 20091123, end: 20091123
  4. PRIVIGEN [Suspect]
     Indication: RENAL AND PANCREAS TRANSPLANT REJECTION
     Dosage: INTRAVENOUS (NOT OTHERWISE SPECIFIED)), INTRAVENOUS  (NOT OTHERWISE SPECIFIED)), INTRAENOUS (NOT OTH
     Route: 042
     Dates: start: 20091125, end: 20091125
  5. PRIVIGEN [Suspect]
     Indication: RENAL AND PANCREAS TRANSPLANT REJECTION
     Dosage: INTRAVENOUS (NOT OTHERWISE SPECIFIED)), INTRAVENOUS  (NOT OTHERWISE SPECIFIED)), INTRAENOUS (NOT OTH
     Route: 042
     Dates: start: 20091127, end: 20091127

REACTIONS (2)
  - INFLUENZA LIKE ILLNESS [None]
  - RESPIRATORY FAILURE [None]
